FAERS Safety Report 5476229-0 (Version None)
Quarter: 2007Q3

REPORT INFORMATION
  Report Type: 
  Country: None (occurrence: None)
  Receive Date: 20070904
  Receipt Date: 20070525
  Transmission Date: 20080115
  Serious: No
  Sender: FDA-Public Use
  Company Number: PHEH2007US07973

PATIENT
  Sex: 0

DRUGS (1)
  1. ENABLEX [Suspect]
     Indication: URINARY INCONTINENCE
     Dosage: 7.5 MG, QD, ORAL
     Route: 048
     Dates: end: 20070511

REACTIONS (1)
  - DRUG INEFFECTIVE [None]
